FAERS Safety Report 9385953 (Version 1)
Quarter: 2013Q3

REPORT INFORMATION
  Report Type: Report from Study
  Country: US (occurrence: US)
  Receive Date: 20130705
  Receipt Date: 20130705
  Transmission Date: 20140515
  Serious: Yes (Hospitalization)
  Sender: FDA-Public Use
  Company Number: US-ABBOTT-13P-163-1113042-00

PATIENT
  Age: 30 Year
  Sex: Male

DRUGS (2)
  1. HUMIRA [Suspect]
     Indication: CROHN^S DISEASE
     Dates: end: 201303
  2. PENTASA [Concomitant]
     Indication: CROHN^S DISEASE
     Dosage: 2 TABLETS DAILY

REACTIONS (3)
  - Pancreatitis [Unknown]
  - Gastrointestinal oedema [Unknown]
  - Pain [Unknown]
